FAERS Safety Report 11170330 (Version 1)
Quarter: 2015Q2

REPORT INFORMATION
  Report Type: Spontaneous
  Country: IN (occurrence: None)
  Receive Date: 20150604
  Receipt Date: 20150604
  Transmission Date: 20150821
  Serious: Yes (Other)
  Sender: FDA-Public Use
  Company Number: 2015HINLIT0470

PATIENT
  Age: 12 Year
  Sex: Male

DRUGS (1)
  1. LAMIVUDINE+STAVUDINE+NEVIRAPINE(LAMIVUDINE, STAVUDINE, NEVIRAPINE) UNKNOWN [Suspect]
     Active Substance: LAMIVUDINE\NEVIRAPINE\STAVUDINE
     Indication: ANTIRETROVIRAL THERAPY

REACTIONS (1)
  - Pancreatitis acute [None]
